FAERS Safety Report 6044821-0 (Version None)
Quarter: 2009Q1

REPORT INFORMATION
  Report Type: 
  Country: None (occurrence: None)
  Receive Date: 20090120
  Receipt Date: 20090112
  Transmission Date: 20090719
  Serious: Yes (Other)
  Sender: FDA-Public Use
  Company Number: HK-GILEAD-2009-0019858

PATIENT

DRUGS (1)
  1. HEPSERA [Suspect]
     Indication: HEPATITIS B VIRUS TEST

REACTIONS (1)
  - ALANINE AMINOTRANSFERASE INCREASED [None]
